FAERS Safety Report 13940291 (Version 11)
Quarter: 2018Q2

REPORT INFORMATION
  Report Type: Other
  Country: FR (occurrence: FR)
  Receive Date: 20170906
  Receipt Date: 20180625
  Transmission Date: 20180711
  Serious: Yes (Hospitalization, Other)
  Sender: FDA-Public Use
  Company Number: FR-ASTELLAS-2017US035283

PATIENT
  Age: 60 Year
  Sex: Male

DRUGS (8)
  1. XTANDI [Suspect]
     Active Substance: ENZALUTAMIDE
     Indication: PROSTATE CANCER METASTATIC
     Dosage: 160 MG, 4 IN 1 DAY
     Route: 048
     Dates: start: 201601
  2. DECAPEPTYL                         /00486501/ [Suspect]
     Active Substance: GONADORELIN
     Indication: PROSTATE CANCER METASTATIC
     Dosage: 11.25 MG, EVERY 3 MONTHS
     Route: 030
     Dates: start: 201209
  3. XOFIGO [Suspect]
     Active Substance: RADIUM RA-223 DICHLORIDE
     Route: 042
  4. XGEVA [Suspect]
     Active Substance: DENOSUMAB
     Indication: PROSTATE CANCER METASTATIC
     Dosage: 120 MG, QMO
     Route: 058
     Dates: start: 201309
  5. XOFIGO [Suspect]
     Active Substance: RADIUM RA-223 DICHLORIDE
     Indication: PROSTATE CANCER METASTATIC
     Dosage: 100 KBQ/ML, CYCLICAL
     Route: 042
     Dates: start: 201612, end: 20170502
  6. CABAZITAXEL [Suspect]
     Active Substance: CABAZITAXEL
     Indication: PROSTATE CANCER METASTATIC
     Dosage: UNK UNK, UNKNOWN FREQ.
     Route: 065
  7. ZYTIGA [Concomitant]
     Active Substance: ABIRATERONE ACETATE
     Indication: PRODUCT USED FOR UNKNOWN INDICATION
     Dosage: UNK UNK, UNKNOWN FREQ.
     Route: 065
  8. DECTANCYL [Suspect]
     Active Substance: DEXAMETHASONE
     Indication: PROSTATE CANCER METASTATIC
     Dosage: 0.5 MG, QD
     Route: 048
     Dates: start: 201502

REACTIONS (15)
  - Prostatic specific antigen increased [Unknown]
  - Hyphaema [Recovered/Resolved]
  - Central nervous system lesion [Unknown]
  - Lymphadenopathy [Unknown]
  - Glaucoma [Unknown]
  - Metastases to bone [Unknown]
  - Intraocular pressure increased [Not Recovered/Not Resolved]
  - Lymphadenopathy [Unknown]
  - Abdominal lymphadenopathy [Unknown]
  - Pigmentary glaucoma [Unknown]
  - Iridocyclitis [Recovered/Resolved]
  - Malignant neoplasm progression [Unknown]
  - Hyphaema [Recovered/Resolved]
  - Vision blurred [Not Recovered/Not Resolved]
  - Cyclitis [Recovered/Resolved]

NARRATIVE: CASE EVENT DATE: 201601
